FAERS Safety Report 24199968 (Version 2)
Quarter: 2024Q3

REPORT INFORMATION
  Report Type: Spontaneous
  Country: GB (occurrence: None)
  Receive Date: 20240812
  Receipt Date: 20240816
  Transmission Date: 20241017
  Serious: Yes (Other)
  Sender: ASTRAZENECA
  Company Number: 2024A181876

PATIENT
  Age: 39 Year
  Sex: Female

DRUGS (2)
  1. QUETIAPINE [Suspect]
     Active Substance: QUETIAPINE
     Indication: Post-traumatic stress disorder
     Dosage: 25MG
     Dates: start: 20240729
  2. PREGABALIN [Concomitant]
     Active Substance: PREGABALIN
     Indication: Post-traumatic stress disorder
     Dates: start: 20240701

REACTIONS (3)
  - Hypertension [Recovered/Resolved]
  - Hyperhidrosis [Not Recovered/Not Resolved]
  - Off label use [Unknown]

NARRATIVE: CASE EVENT DATE: 20240729
